FAERS Safety Report 16644247 (Version 1)
Quarter: 2019Q3

REPORT INFORMATION
  Report Type: Spontaneous
  Country: US (occurrence: US)
  Receive Date: 20190729
  Receipt Date: 20190729
  Transmission Date: 20191004
  Serious: Yes (Hospitalization)
  Sender: FDA-Public Use
  Company Number: US-BRISTOL-MYERS SQUIBB COMPANY-BMS-2019-071319

PATIENT
  Sex: Female
  Weight: 52.1 kg

DRUGS (2)
  1. CLONAZEPAM. [Concomitant]
     Active Substance: CLONAZEPAM
     Indication: PRODUCT USED FOR UNKNOWN INDICATION
     Dosage: UNK
     Route: 065
  2. COUMADIN [Suspect]
     Active Substance: WARFARIN SODIUM
     Indication: ATRIAL FIBRILLATION
     Dosage: 2 MG NIGHTLY/1 MG ON WEEKENDS
     Route: 065

REACTIONS (4)
  - International normalised ratio abnormal [Unknown]
  - Coronary artery disease [Unknown]
  - Feeling abnormal [Unknown]
  - Visual impairment [Unknown]
